FAERS Safety Report 9916356 (Version 4)
Quarter: 2014Q2

REPORT INFORMATION
  Report Type: Spontaneous
  Country: TW (occurrence: TW)
  Receive Date: 20140221
  Receipt Date: 20140528
  Transmission Date: 20141212
  Serious: Yes (Hospitalization)
  Sender: FDA-Public Use
  Company Number: PHHY2013TW147546

PATIENT
  Age: 53 Year
  Sex: Male

DRUGS (1)
  1. GLIVEC [Suspect]
     Indication: GASTROINTESTINAL STROMAL TUMOUR
     Dosage: UNK UKN, UNK

REACTIONS (3)
  - Bladder neoplasm [Recovered/Resolved]
  - Metastases to rectum [Recovered/Resolved]
  - Diarrhoea [Recovering/Resolving]
